FAERS Safety Report 23152840 (Version 1)
Quarter: 2023Q4

REPORT INFORMATION
  Report Type: Spontaneous
  Country: US (occurrence: US)
  Receive Date: 20231107
  Receipt Date: 20231107
  Transmission Date: 20240110
  Serious: Yes (Hospitalization, Other)
  Sender: FDA-Public Use
  Company Number: US-Accord-388383

PATIENT
  Age: 38 Year
  Sex: Male

DRUGS (5)
  1. DEXMEDETOMIDINE HYDROCHLORIDE [Suspect]
     Active Substance: DEXMEDETOMIDINE HYDROCHLORIDE
     Indication: Sedation
     Dosage: 1.3 MCG/KG PER HOUR
  2. PROPOFOL [Concomitant]
     Active Substance: PROPOFOL
     Indication: Sedation
     Dosage: 80 MCG/KG PER MINUTE
  3. MIDAZOLAM [Concomitant]
     Active Substance: MIDAZOLAM
     Dosage: BOLUSES AS NEEDED
  4. LORAZEPAM [Concomitant]
     Active Substance: LORAZEPAM
     Dosage: BOLUSES AS NEEDED.
  5. DEXMEDETOMIDINE HYDROCHLORIDE [Suspect]
     Active Substance: DEXMEDETOMIDINE HYDROCHLORIDE
     Dosage: 1 MCG/KG PER HOUR

REACTIONS (3)
  - Arteriospasm coronary [Recovered/Resolved]
  - Withdrawal syndrome [Recovered/Resolved]
  - Acute myocardial infarction [Recovered/Resolved]
